FAERS Safety Report 6631081-2 (Version None)
Quarter: 2010Q1

REPORT INFORMATION
  Report Type: 
  Country: None (occurrence: None)
  Receive Date: 20100311
  Receipt Date: 20100302
  Transmission Date: 20100710
  Serious: Yes (Other)
  Sender: FDA-Public Use
  Company Number: US-MERCK-1003USA00513

PATIENT
  Age: 71 Year
  Sex: Female

DRUGS (6)
  1. SINGULAIR [Suspect]
     Indication: SEASONAL ALLERGY
     Route: 048
     Dates: start: 20070101
  2. COUMADIN [Concomitant]
     Route: 065
  3. LIPITOR [Concomitant]
     Route: 065
  4. AMBIEN [Concomitant]
     Route: 065
  5. ALLEGRA [Concomitant]
     Route: 065
  6. PAXIL [Concomitant]
     Route: 065

REACTIONS (5)
  - DEAFNESS [None]
  - EAR CONGESTION [None]
  - EAR DISCOMFORT [None]
  - EAR DISORDER [None]
  - HYPOACUSIS [None]
